FAERS Safety Report 5875454-4 (Version None)
Quarter: 2008Q3

REPORT INFORMATION
  Report Type: 
  Country: None (occurrence: None)
  Receive Date: 20080904
  Receipt Date: 20080819
  Transmission Date: 20090109
  Serious: Yes (Other)
  Sender: FDA-Public Use
  Company Number: 8028428

PATIENT
  Age: 31 Year
  Sex: Female

DRUGS (4)
  1. KEPPRA [Suspect]
     Indication: EPILEPSY
     Dosage: 750 MG /D
  2. VALPROATE SODIUM [Suspect]
     Indication: EPILEPSY
     Dosage: 1750 MG /D
  3. LAMOTRIGINE [Suspect]
     Indication: EPILEPSY
     Dosage: 225 MG /D
  4. LAMOTRIGINE [Suspect]
     Indication: EPILEPSY
     Dosage: 375 MG /D

REACTIONS (5)
  - CAESAREAN SECTION [None]
  - DRUG EXPOSURE DURING PREGNANCY [None]
  - PREGNANCY ON ORAL CONTRACEPTIVE [None]
  - SLEEP DISORDER [None]
  - UNINTENDED PREGNANCY [None]
